FAERS Safety Report 24916784 (Version 2)
Quarter: 2025Q1

REPORT INFORMATION
  Report Type: Spontaneous
  Country: GR (occurrence: GR)
  Receive Date: 20250203
  Receipt Date: 20250212
  Transmission Date: 20250409
  Serious: Yes (Hospitalization)
  Sender: INCYTE
  Company Number: GR-002147023-NVSC2025GR016013

PATIENT

DRUGS (1)
  1. RUXOLITINIB [Suspect]
     Active Substance: RUXOLITINIB
     Indication: Myelofibrosis
     Route: 065

REACTIONS (4)
  - Anaemia [Unknown]
  - Haematocrit decreased [Recovering/Resolving]
  - Pulmonary oedema [Recovering/Resolving]
  - Haemoglobin decreased [Recovering/Resolving]
